FAERS Safety Report 8254440-3 (Version None)
Quarter: 2012Q2

REPORT INFORMATION
  Report Type: 
  Country: None (occurrence: None)
  Receive Date: 20120403
  Receipt Date: 20120326
  Transmission Date: 20120825
  Serious: Yes (Other)
  Sender: FDA-Public Use
  Company Number: US-AMGEN-USASP2012010202

PATIENT
  Age: 61 Year
  Sex: Female

DRUGS (1)
  1. ENBREL [Suspect]
     Indication: RHEUMATOID ARTHRITIS
     Dosage: 50 MG, QWK
     Dates: start: 20110825

REACTIONS (11)
  - INJECTION SITE PAIN [None]
  - PULMONARY GRANULOMA [None]
  - NAUSEA [None]
  - VOMITING [None]
  - INJECTION SITE INDURATION [None]
  - INJECTION SITE HAEMATOMA [None]
  - RESPIRATORY DISORDER [None]
  - DIZZINESS [None]
  - RHEUMATOID ARTHRITIS [None]
  - GALLBLADDER DISORDER [None]
  - PAIN [None]
